FAERS Safety Report 20615334 (Version 4)
Quarter: 2022Q2

REPORT INFORMATION
  Report Type: Spontaneous
  Country: BE (occurrence: BE)
  Receive Date: 20220321
  Receipt Date: 20220427
  Transmission Date: 20220720
  Serious: Yes (Hospitalization)
  Sender: FDA-Public Use
  Company Number: BE-Accord-256706

PATIENT
  Age: 73 Year
  Sex: Male
  Weight: 78 kg

DRUGS (11)
  1. BENDAMUSTINE [Suspect]
     Active Substance: BENDAMUSTINE
     Indication: Product used for unknown indication
     Dosage: QD
     Route: 042
     Dates: start: 20220110, end: 20220111
  2. BENDAMUSTINE [Suspect]
     Active Substance: BENDAMUSTINE
     Dosage: QD
     Route: 042
     Dates: start: 20220131, end: 20220201
  3. RITUXIMAB [Suspect]
     Active Substance: RITUXIMAB
     Indication: Product used for unknown indication
     Dosage: 1Q3W
     Route: 042
     Dates: start: 20220110, end: 20220131
  4. SOLU-MEDROL [Suspect]
     Active Substance: METHYLPREDNISOLONE SODIUM SUCCINATE
     Indication: Product used for unknown indication
     Route: 042
     Dates: start: 20220131, end: 20220201
  5. ZOLPIDEM [Concomitant]
     Active Substance: ZOLPIDEM TARTRATE
     Dates: start: 20220222
  6. ALLOPURINOL [Concomitant]
     Active Substance: ALLOPURINOL
     Dates: start: 20220110
  7. POVIDONE-IODINE [Concomitant]
     Active Substance: POVIDONE-IODINE
     Dates: start: 20220221, end: 20220221
  8. ZYRTEC (BELGIUM) [Concomitant]
     Dates: start: 20220110
  9. PALONOSETRON HYDROCHLORIDE [Concomitant]
     Active Substance: PALONOSETRON HYDROCHLORIDE
     Dates: start: 20220110
  10. DAFALGAN [Concomitant]
     Active Substance: ACETAMINOPHEN
     Dates: start: 20220110
  11. NEBIVOLOL [Concomitant]
     Active Substance: NEBIVOLOL
     Dates: start: 20220224

REACTIONS (1)
  - Pneumonia [Not Recovered/Not Resolved]

NARRATIVE: CASE EVENT DATE: 20220220
